FAERS Safety Report 15678806 (Version 1)
Quarter: 2018Q4

REPORT INFORMATION
  Report Type: Spontaneous
  Country: FR (occurrence: FR)
  Receive Date: 20181202
  Receipt Date: 20181202
  Transmission Date: 20190205
  Serious: Yes (Other)
  Sender: FDA-Public Use
  Company Number: PHHY2018FR167982

PATIENT
  Age: 84 Year
  Sex: Male
  Weight: 67 kg

DRUGS (3)
  1. RIFAMPICIN [Suspect]
     Active Substance: RIFAMPIN
     Indication: VASCULAR DEVICE INFECTION
     Dosage: 600 MG, QD
     Route: 048
     Dates: start: 20181011
  2. CLOXACILLIN [Suspect]
     Active Substance: CLOXACILLIN
     Indication: VASCULAR DEVICE INFECTION
     Dosage: 8 G, QD
     Route: 042
     Dates: start: 20181016
  3. CEFAZOLINE [Suspect]
     Active Substance: CEFAZOLIN SODIUM
     Indication: VASCULAR DEVICE INFECTION
     Dosage: 2 G, QOD
     Route: 042
     Dates: start: 20181011, end: 20181015

REACTIONS (4)
  - Prothrombin time shortened [Recovered/Resolved]
  - Coagulation factor VII level decreased [Recovered/Resolved]
  - Coagulation factor X level decreased [Recovered/Resolved]
  - Prothrombin level decreased [Recovered/Resolved]

NARRATIVE: CASE EVENT DATE: 20181023
